FAERS Safety Report 6997969-8 (Version None)
Quarter: 2010Q3

REPORT INFORMATION
  Report Type: 
  Country: None (occurrence: None)
  Receive Date: 20100901
  Receipt Date: 20100503
  Transmission Date: 20110219
  Serious: Yes (Other)
  Sender: FDA-Public Use
  Company Number: 230556USA

PATIENT
  Age: 52 Year
  Sex: Female

DRUGS (10)
  1. OXALIPLATIN [Suspect]
     Indication: RECTAL CANCER
     Dosage: (165 MG), INTRAVENOUS
     Route: 042
  2. FLUOROURACIL [Concomitant]
  3. BEVACIZUMAB [Concomitant]
  4. DEXAMETHASONE [Concomitant]
  5. PALONOSETRON HYDROCHLORIDE [Concomitant]
  6. POTASSIUM CHLORIDE [Concomitant]
  7. VICODIN [Concomitant]
  8. SIMVASTATIN [Concomitant]
  9. OXYCODONE [Concomitant]
  10. PRINZIDE [Concomitant]

REACTIONS (1)
  - DRUG HYPERSENSITIVITY [None]
